FAERS Safety Report 7237472-3 (Version None)
Quarter: 2011Q1

REPORT INFORMATION
  Report Type: 
  Country: None (occurrence: None)
  Receive Date: 20110121
  Receipt Date: 20110114
  Transmission Date: 20110831
  Serious: Yes (Hospitalization)
  Sender: FDA-Public Use
  Company Number: NL-MEDIMMUNE-MEDI-0012163

PATIENT
  Sex: Male
  Weight: 5.4 kg

DRUGS (5)
  1. SYNAGIS [Suspect]
     Route: 030
     Dates: start: 20101012, end: 20101207
  2. IRON [Concomitant]
     Dates: start: 20100101
  3. SYNAGIS [Suspect]
     Route: 030
     Dates: start: 20110104
  4. ERGOCALCIFEROL [Concomitant]
     Dates: start: 20100101
  5. SODIUM POTASSIUM BEVERAGE [Concomitant]
     Dates: start: 20100101

REACTIONS (3)
  - VIRAL UPPER RESPIRATORY TRACT INFECTION [None]
  - FLUID INTAKE REDUCED [None]
  - HYPOPHAGIA [None]
